FAERS Safety Report 9295886 (Version 1)
Quarter: 2013Q2

REPORT INFORMATION
  Report Type: Spontaneous
  Country: PL (occurrence: None)
  Receive Date: 20130514
  Receipt Date: 20130514
  Transmission Date: 20140414
  Serious: Yes (Life-Threatening)
  Sender: FDA-Public Use
  Company Number: 1709697

PATIENT
  Age: 52 Year
  Sex: Female
  Weight: 67 kg

DRUGS (2)
  1. DOCETAXEL [Suspect]
     Indication: BREAST CANCER
     Route: 042
     Dates: start: 20121002, end: 20121002
  2. ADRIAMYCIN [Concomitant]

REACTIONS (6)
  - Erythema [None]
  - Oedema mouth [None]
  - Dyspnoea [None]
  - Pruritus [None]
  - Hypersensitivity [None]
  - Pruritus generalised [None]
